FAERS Safety Report 4524570-8 (Version None)
Quarter: 2004Q4

REPORT INFORMATION
  Report Type: 
  Country: None (occurrence: None)
  Receive Date: 20041117
  Receipt Date: 20040601
  Transmission Date: 20050328
  Serious: Yes (Hospitalization)
  Sender: FDA-Public Use
  Company Number: US-JNJFOC-20040600941

PATIENT
  Age: 55 Year
  Sex: Male
  Weight: 88.3 kg

DRUGS (4)
  1. LEVOFLOXACIN [Suspect]
     Dates: start: 20031016, end: 20031027
  2. PKC412 (ALL OTHER THERAPEUTIC PRODUCTS) [Suspect]
     Indication: ACUTE MYELOID LEUKAEMIA
     Dosage: 100 MG, 2 IN 1 DAY
     Dates: start: 20031017, end: 20031109
  3. DAUNORUBICIN HCL [Concomitant]
  4. CYTARABINE [Concomitant]

REACTIONS (8)
  - ANAEMIA [None]
  - CLOSTRIDIAL INFECTION [None]
  - NAUSEA [None]
  - PNEUMONIA [None]
  - PYREXIA [None]
  - RASH ERYTHEMATOUS [None]
  - RASH MACULO-PAPULAR [None]
  - RENAL FAILURE [None]
